FAERS Safety Report 6031706-9 (Version None)
Quarter: 2009Q1

REPORT INFORMATION
  Report Type: 
  Country: None (occurrence: None)
  Receive Date: 20090108
  Receipt Date: 20081229
  Transmission Date: 20090719
  Serious: Yes (Hospitalization, Other)
  Sender: FDA-Public Use
  Company Number: B0276860A

PATIENT
  Age: 50 Year
  Sex: Male

DRUGS (19)
  1. EPIVIR [Suspect]
     Indication: HIV INFECTION
     Route: 048
     Dates: end: 20010502
  2. EPIVIR [Suspect]
     Route: 048
     Dates: start: 20010503, end: 20010917
  3. EPIVIR [Suspect]
     Route: 048
     Dates: start: 20011012, end: 20020105
  4. EPIVIR [Suspect]
     Route: 048
     Dates: start: 20020223, end: 20030331
  5. EPIVIR [Suspect]
     Dosage: 150MG TWICE PER DAY
     Route: 048
     Dates: start: 20030401, end: 20070502
  6. ZIAGEN [Suspect]
     Indication: HIV INFECTION
     Route: 048
     Dates: end: 20020105
  7. ZIAGEN [Suspect]
     Route: 048
     Dates: start: 20020223, end: 20060331
  8. ZIAGEN [Suspect]
     Dosage: 300MG TWICE PER DAY
     Route: 048
     Dates: start: 20060401, end: 20070502
  9. ZERIT [Suspect]
     Indication: HIV INFECTION
     Route: 048
     Dates: end: 20000920
  10. ZERIT [Suspect]
     Route: 048
     Dates: start: 20000921, end: 20010917
  11. VIRACEPT [Suspect]
     Indication: HIV INFECTION
     Route: 048
  12. VIRACEPT [Suspect]
     Route: 048
     Dates: start: 20011012, end: 20020105
  13. VIRACEPT [Suspect]
     Route: 048
     Dates: start: 20020223
  14. EPZICOM [Suspect]
     Indication: HIV INFECTION
     Route: 048
     Dates: start: 20070503
  15. COTRIM [Concomitant]
     Indication: ANTIFUNGAL PROPHYLAXIS
     Dosage: 480MG PER DAY
     Route: 048
     Dates: start: 20010401, end: 20020807
  16. TOFRANIL [Concomitant]
     Indication: NERVE ROOT LESION
     Dates: start: 20060401, end: 20060420
  17. CLONAZEPAM [Concomitant]
     Indication: NERVE ROOT LESION
     Dosage: 7.5MG PER DAY
     Route: 048
     Dates: start: 20060401
  18. TEGRETOL [Concomitant]
     Indication: NERVE ROOT LESION
     Dosage: 300MG PER DAY
     Route: 048
     Dates: start: 20060401
  19. ZYLORIC [Concomitant]

REACTIONS (3)
  - LOSS OF CONSCIOUSNESS [None]
  - NEUROPATHY PERIPHERAL [None]
  - PANCYTOPENIA [None]
